FAERS Safety Report 21036532 (Version 7)
Quarter: 2023Q1

REPORT INFORMATION
  Report Type: Spontaneous
  Country: CA (occurrence: CA)
  Receive Date: 20220702
  Receipt Date: 20230304
  Transmission Date: 20230418
  Serious: Yes (Other)
  Sender: FDA-Public Use
  Company Number: CA-CELLTRION INC.-2022CA006265

PATIENT

DRUGS (5)
  1. INFLECTRA [Suspect]
     Active Substance: INFLIXIMAB-DYYB
     Indication: Crohn^s disease
     Dosage: 600 MG, EVERY 7 WEEKS
     Route: 042
     Dates: start: 20220506, end: 20220622
  2. INFLECTRA [Suspect]
     Active Substance: INFLIXIMAB-DYYB
     Dosage: 600 MG, EVERY 7 WEEKS
     Route: 042
     Dates: start: 20220622
  3. INFLECTRA [Suspect]
     Active Substance: INFLIXIMAB-DYYB
     Dosage: 600 MG, EVERY 6 WEEKS
     Route: 042
     Dates: start: 20220803
  4. INFLECTRA [Suspect]
     Active Substance: INFLIXIMAB-DYYB
     Dosage: 600 MG Q 6 WEEK, LAST INFUSION DATE UNCONFIRMED
     Route: 042
  5. CLOBEX [CLOBETASOL PROPIONATE] [Concomitant]
     Indication: Psoriasis
     Dosage: UNK, A LONG TIME AGO

REACTIONS (5)
  - Uveitis [Not Recovered/Not Resolved]
  - Ingrowing nail [Recovering/Resolving]
  - Intentional product use issue [Unknown]
  - Off label use [Unknown]
  - Off label use [Unknown]

NARRATIVE: CASE EVENT DATE: 20220506
